FAERS Safety Report 10761970 (Version 2)
Quarter: 2015Q1

REPORT INFORMATION
  Report Type: Spontaneous
  Country: US (occurrence: US)
  Receive Date: 20150204
  Receipt Date: 20150209
  Transmission Date: 20150721
  Serious: Yes (Other)
  Sender: FDA-Public Use
  Company Number: US-UNITED THERAPEUTICS EUROPE LTD-UNT-2015-001039

PATIENT
  Sex: Female
  Weight: 73.47 kg

DRUGS (1)
  1. REMODULIN [Suspect]
     Active Substance: TREPROSTINIL
     Indication: PULMONARY HYPERTENSION
     Dosage: 0.044 ?G/KG, CONTINUING
     Route: 058
     Dates: start: 20130627

REACTIONS (2)
  - Device use error [Unknown]
  - Cataract [Unknown]
